FAERS Safety Report 24535987 (Version 2)
Quarter: 2024Q4

REPORT INFORMATION
  Report Type: Spontaneous
  Country: US (occurrence: US)
  Receive Date: 20241022
  Receipt Date: 20241024
  Transmission Date: 20250115
  Serious: Yes (Other)
  Sender: UCB
  Company Number: US-UCBSA-2024053043

PATIENT
  Sex: Female
  Weight: 61.7 kg

DRUGS (1)
  1. CIMZIA [Suspect]
     Active Substance: CERTOLIZUMAB PEGOL
     Indication: Rheumatoid arthritis
     Dosage: 400 MILLIGRAM, EV 4 WEEKS
     Route: 058
     Dates: start: 202109

REACTIONS (3)
  - Rheumatoid arthritis [Unknown]
  - Maternal exposure during pregnancy [Unknown]
  - Inappropriate schedule of product administration [Unknown]
